FAERS Safety Report 7236326-6 (Version None)
Quarter: 2011Q1

REPORT INFORMATION
  Report Type: 
  Country: None (occurrence: None)
  Receive Date: 20110120
  Receipt Date: 20110110
  Transmission Date: 20110831
  Serious: Yes (Hospitalization)
  Sender: FDA-Public Use
  Company Number: IT-WATSON-2011-00417

PATIENT
  Age: 1 Month
  Sex: Male

DRUGS (2)
  1. PROPRANOLOL [Suspect]
     Indication: HEPATIC LESION
     Dosage: 2 MG/KG, DAILY IN 3 DIVIDED DOSES
     Route: 065
  2. PROPRANOLOL [Suspect]
     Indication: HAEMANGIOMA

REACTIONS (1)
  - HYPOGLYCAEMIC SEIZURE [None]
